FAERS Safety Report 5170023-6 (Version None)
Quarter: 2006Q4

REPORT INFORMATION
  Report Type: 
  Country: None (occurrence: None)
  Receive Date: 20061212
  Receipt Date: 20061129
  Transmission Date: 20070319
  Serious: Yes (Hospitalization, Other)
  Sender: FDA-Public Use
  Company Number: JP-ELI_LILLY_AND_COMPANY-JP200612000683

PATIENT
  Age: 70 Year
  Sex: Female

DRUGS (3)
  1. GEMZAR [Suspect]
     Indication: PANCREATIC CARCINOMA NON-RESECTABLE
     Route: 042
     Dates: start: 20021201
  2. GEMZAR [Suspect]
     Dates: start: 20051101
  3. THERAPEUTIC RADIOPHARMACEUTICALS [Concomitant]
     Indication: PANCREATIC CARCINOMA NON-RESECTABLE
     Dates: start: 20021201

REACTIONS (4)
  - DISSEMINATED INTRAVASCULAR COAGULATION [None]
  - NECROTISING FASCIITIS [None]
  - NEOPLASM PROGRESSION [None]
  - PNEUMONIA [None]
